FAERS Safety Report 6634970-8 (Version None)
Quarter: 2010Q1

REPORT INFORMATION
  Report Type: 
  Country: None (occurrence: None)
  Receive Date: 20100315
  Receipt Date: 20100310
  Transmission Date: 20100710
  Serious: Yes (Life-Threatening, Hospitalization, Other)
  Sender: FDA-Public Use
  Company Number: LT-BRISTOL-MYERS SQUIBB COMPANY-15010937

PATIENT
  Age: 55 Year
  Sex: Female

DRUGS (1)
  1. MONOZIDE TABS 20 MG/12.5 MG [Suspect]
     Indication: HYPERTENSION
     Dosage: 1DF-1TAB  DURATION:4-5 YEARS
     Route: 048
     Dates: end: 20081101

REACTIONS (5)
  - CARDIAC ARREST [None]
  - DIARRHOEA [None]
  - ECG SIGNS OF MYOCARDIAL ISCHAEMIA [None]
  - HYPOKALAEMIA [None]
  - VENTRICULAR FIBRILLATION [None]
